FAERS Safety Report 8575837-8 (Version None)
Quarter: 2012Q3

REPORT INFORMATION
  Report Type: 
  Country: None (occurrence: None)
  Receive Date: 20120807
  Receipt Date: 20120723
  Transmission Date: 20120928
  Serious: Yes (Other)
  Sender: FDA-Public Use
  Company Number: JP-GILEAD-2012-0058996

PATIENT
  Sex: Female

DRUGS (2)
  1. AMBRISENTAN [Suspect]
     Dosage: 2.5MG PER DAY
     Route: 048
     Dates: start: 20120307
  2. AMBRISENTAN [Suspect]
     Indication: PULMONARY ARTERIAL HYPERTENSION
     Dosage: 5MG QD
     Route: 048
     Dates: end: 20120608

REACTIONS (1)
  - MATERNAL EXPOSURE DURING PREGNANCY [None]
